FAERS Safety Report 11306865 (Version 1)
Quarter: 2015Q3

REPORT INFORMATION
  Report Type: Spontaneous
  Country: US (occurrence: US)
  Receive Date: 20150723
  Receipt Date: 20150723
  Transmission Date: 20151125
  Serious: No
  Sender: FDA-Public Use
  Company Number: US-ASTELLAS-2015US016429

PATIENT
  Age: 84 Year
  Sex: Female

DRUGS (2)
  1. MYRBETRIQ [Suspect]
     Active Substance: MIRABEGRON
     Route: 065
  2. MYRBETRIQ [Suspect]
     Active Substance: MIRABEGRON
     Indication: HYPERTONIC BLADDER
     Route: 065
     Dates: start: 20150412, end: 20150609

REACTIONS (13)
  - Nasopharyngitis [Recovered/Resolved]
  - Back pain [Recovered/Resolved]
  - Drug ineffective [Unknown]
  - Drug dose omission [Unknown]
  - Headache [Recovered/Resolved]
  - Dysuria [Recovered/Resolved]
  - Fall [Unknown]
  - Adverse event [Unknown]
  - Migraine [Unknown]
  - Burning sensation [Unknown]
  - Dry mouth [Unknown]
  - Pain [Recovered/Resolved]
  - Coordination abnormal [Unknown]

NARRATIVE: CASE EVENT DATE: 201504
